FAERS Safety Report 12656462 (Version 1)
Quarter: 2016Q3

REPORT INFORMATION
  Report Type: Spontaneous
  Country: US (occurrence: US)
  Receive Date: 20160816
  Receipt Date: 20160816
  Transmission Date: 20161109
  Serious: No
  Sender: FDA-Public Use
  Company Number: US-PERRIGO-15US011117

PATIENT
  Age: 66 Year
  Sex: Male
  Weight: 92.63 kg

DRUGS (9)
  1. LORATADINE. [Suspect]
     Active Substance: LORATADINE
     Indication: PRODUCTIVE COUGH
     Dosage: UNKNOWN, UNKNOWN
     Route: 048
     Dates: start: 2014, end: 20151021
  2. BETAMETHASONE DIPROPIONATE. [Suspect]
     Active Substance: BETAMETHASONE DIPROPIONATE
     Indication: PSORIASIS
     Dosage: UNKNOWN, UNKNOWN
     Route: 061
     Dates: start: 201508, end: 20151016
  3. SALEX [Suspect]
     Active Substance: SALICYLIC ACID
     Indication: PSORIASIS
     Dosage: UNKNOWN, UNKNOWN
     Route: 061
     Dates: start: 201508, end: 20151016
  4. VITAMIN D [Concomitant]
     Active Substance: CHOLECALCIFEROL
     Indication: VITAMIN D DEFICIENCY
     Dosage: UNK
     Route: 048
  5. LIPITOR [Concomitant]
     Active Substance: ATORVASTATIN CALCIUM
     Indication: BLOOD CHOLESTEROL INCREASED
     Dosage: UNK
     Route: 048
  6. CLOBETASOL [Suspect]
     Active Substance: CLOBETASOL
     Indication: PSORIASIS
     Dosage: UNKNOWN, UNKNOWN
     Route: 061
     Dates: start: 201508, end: 20151016
  7. CENTRUM SILVER                     /02363801/ [Concomitant]
     Active Substance: MINERALS\VITAMINS
     Indication: SUPPLEMENTATION THERAPY
     Dosage: UNK
     Route: 048
  8. ZETIA [Concomitant]
     Active Substance: EZETIMIBE
     Indication: BLOOD CHOLESTEROL INCREASED
     Dosage: UNK
     Route: 065
  9. CALCIPOTRIENE. [Suspect]
     Active Substance: CALCIPOTRIENE
     Indication: PSORIASIS
     Dosage: UNKNOWN, UNKNOWN
     Route: 061
     Dates: start: 201508, end: 20151016

REACTIONS (2)
  - Off label use [Recovered/Resolved]
  - Blood glucose increased [Unknown]

NARRATIVE: CASE EVENT DATE: 2014
